FAERS Safety Report 15699757 (Version 1)
Quarter: 2018Q4

REPORT INFORMATION
  Report Type: Spontaneous
  Country: US (occurrence: US)
  Receive Date: 20181207
  Receipt Date: 20181207
  Transmission Date: 20190205
  Serious: Yes (Other)
  Sender: FDA-Public Use
  Company Number: US-TEVA-2018-US-983889

PATIENT
  Sex: Female

DRUGS (2)
  1. VALIUM [Concomitant]
     Active Substance: DIAZEPAM
     Dosage: 6HRS AFTER CLONAZEPAM AND AT BED TIME
  2. CLONAZEPAM ACTAVIS [Suspect]
     Active Substance: CLONAZEPAM
     Indication: PANIC ATTACK
     Route: 048

REACTIONS (13)
  - Dizziness [Unknown]
  - Eating disorder [Unknown]
  - Tremor [Unknown]
  - Product substitution issue [Unknown]
  - Anxiety [Unknown]
  - Malaise [Unknown]
  - Withdrawal syndrome [Unknown]
  - Nausea [Unknown]
  - Irritability [Unknown]
  - Diarrhoea [Unknown]
  - Herpes zoster [Unknown]
  - Drug ineffective [Unknown]
  - Blister [Unknown]
